FAERS Safety Report 12067011 (Version 1)
Quarter: 2016Q1

REPORT INFORMATION
  Report Type: Spontaneous
  Country: ES (occurrence: ES)
  Receive Date: 20160211
  Receipt Date: 20160211
  Transmission Date: 20160526
  Serious: Yes (Other)
  Sender: FDA-Public Use
  Company Number: ES-AMGEN-ESPSP2016014235

PATIENT
  Age: 46 Year
  Sex: Female

DRUGS (1)
  1. PROLIA [Suspect]
     Active Substance: DENOSUMAB
     Indication: SPINAL FRACTURE
     Dosage: UNK
     Route: 065

REACTIONS (8)
  - Pain [Unknown]
  - Adverse drug reaction [Unknown]
  - Skin hyperpigmentation [Unknown]
  - Arthralgia [Unknown]
  - Tooth loss [Unknown]
  - Bone swelling [Unknown]
  - Osteonecrosis of jaw [Unknown]
  - Hypocalcaemia [Unknown]
